FAERS Safety Report 5714952-0 (Version None)
Quarter: 2008Q2

REPORT INFORMATION
  Report Type: 
  Country: None (occurrence: None)
  Receive Date: 20080423
  Receipt Date: 20080416
  Transmission Date: 20081010
  Serious: Yes (Other)
  Sender: FDA-Public Use
  Company Number: GB-ROCHE-543468

PATIENT
  Sex: Female
  Weight: 124 kg

DRUGS (1)
  1. ORLISTAT [Suspect]
     Indication: OBESITY
     Route: 048
     Dates: start: 20071005, end: 20080101

REACTIONS (2)
  - BENIGN NEOPLASM [None]
  - PITUITARY-DEPENDENT CUSHING'S SYNDROME [None]
